FAERS Safety Report 4932967-7 (Version None)
Quarter: 2006Q1

REPORT INFORMATION
  Report Type: 
  Country: None (occurrence: None)
  Receive Date: 20060306
  Receipt Date: 20051019
  Transmission Date: 20060701
  Serious: Yes (Hospitalization)
  Sender: FDA-Public Use
  Company Number: US-AVENTIS-200518250US

PATIENT
  Sex: Female
  Weight: 73 kg

DRUGS (5)
  1. LOVENOX [Suspect]
     Indication: THROMBOSIS PROPHYLAXIS
     Route: 058
     Dates: start: 20050908, end: 20050917
  2. COUMADIN [Suspect]
     Indication: THROMBOSIS PROPHYLAXIS
     Dosage: DOSE: NOT PROVIDED
     Dates: end: 20050917
  3. ADVAIR DISKUS 100/50 [Concomitant]
     Dosage: DOSE: NOT PROVIDED
  4. COUMADIN [Concomitant]
     Indication: PROPHYLAXIS
     Dosage: DOSE: 12MG MON, TUE, WED, THUR, FRI; 15MG SAT, SUN
     Route: 048
  5. DEMADEX [Concomitant]
     Dosage: DOSE: NOT PROVIDED

REACTIONS (8)
  - ASTHENIA [None]
  - DYSURIA [None]
  - HYPOAESTHESIA [None]
  - NECK PAIN [None]
  - PYREXIA [None]
  - QUADRIPLEGIA [None]
  - SPINAL HAEMATOMA [None]
  - URINARY TRACT INFECTION [None]
